FAERS Safety Report 6076596-3 (Version None)
Quarter: 2009Q1

REPORT INFORMATION
  Report Type: 
  Country: None (occurrence: None)
  Receive Date: 20090213
  Receipt Date: 20081103
  Transmission Date: 20090719
  Serious: Yes (Other)
  Sender: FDA-Public Use
  Company Number: US-BRISTOL-MYERS SQUIBB COMPANY-14086557

PATIENT
  Age: 48 Year
  Sex: Female

DRUGS (4)
  1. IXEMPRA KIT [Suspect]
     Indication: BREAST CANCER METASTATIC
     Dosage: STARTED ON 03JAN08.
     Route: 042
     Dates: start: 20080215, end: 20080215
  2. BENADRYL [Concomitant]
  3. KYTRIL [Concomitant]
     Dosage: 1 DOSAGE FORM = 1(UNITS NOT SPEC)
  4. PEPCID [Concomitant]

REACTIONS (1)
  - HYPERSENSITIVITY [None]
